FAERS Safety Report 7702273-6 (Version None)
Quarter: 2011Q3

REPORT INFORMATION
  Report Type: 
  Country: None (occurrence: None)
  Receive Date: 20110822
  Receipt Date: 20110818
  Transmission Date: 20111222
  Serious: Yes (Hospitalization)
  Sender: FDA-Public Use
  Company Number: HR-BAYER-2011-022507

PATIENT
  Age: 69 Year
  Sex: Male
  Weight: 54 kg

DRUGS (8)
  1. MOXIFLOXACIN [Suspect]
     Dosage: 400 MG, UNK
     Route: 048
     Dates: start: 20091225, end: 20091229
  2. MOXIFLOXACIN [Suspect]
     Indication: PNEUMONIA
     Dosage: 400 MG, UNK
     Route: 042
     Dates: start: 20091222, end: 20091224
  3. IBRUPROFEN [Concomitant]
     Dosage: 600 UNK, UNK
     Dates: start: 20090101
  4. PANTOPRAZOLE [Concomitant]
     Dosage: 40 MG, UNK
     Dates: start: 20091222, end: 20091229
  5. LANITOP [Concomitant]
     Dosage: 0.1 MG, UNK
     Dates: start: 20060101
  6. MEDROL [Concomitant]
     Dosage: 40 MG, UNK
     Dates: start: 20091222, end: 20091226
  7. FURSEMID [Concomitant]
     Dosage: 40 MG, UNK
     Dates: start: 20060101
  8. LUPOCET [Concomitant]
     Dosage: 500 MG, UNK
     Dates: start: 20091222

REACTIONS (1)
  - PNEUMONIA [None]
